FAERS Safety Report 25742894 (Version 1)
Quarter: 2025Q3

REPORT INFORMATION
  Report Type: Spontaneous
  Country: EU (occurrence: EU)
  Receive Date: 20250830
  Receipt Date: 20250830
  Transmission Date: 20251021
  Serious: Yes (Hospitalization)
  Sender: ACCORD
  Company Number: None

PATIENT
  Age: 7 Year
  Sex: Male
  Weight: 35 kg

DRUGS (15)
  1. METHOTREXATE [Suspect]
     Active Substance: METHOTREXATE
     Indication: Acute lymphocytic leukaemia
     Dates: start: 20250415, end: 20250415
  2. HYDROCORTISONE [Concomitant]
     Active Substance: HYDROCORTISONE
     Indication: Acute lymphocytic leukaemia
     Dosage: DAILY DOSE: 15 MG EVERY 1 DAY
     Dates: start: 20250415, end: 20250427
  3. DEXAMETHASONE [Concomitant]
     Active Substance: DEXAMETHASONE
     Indication: Acute lymphocytic leukaemia
     Dosage: 8 MG 3X TGL. DAILY DOSE: 24 MG EVERY 1 DAY
     Dates: start: 20250422, end: 20250427
  4. VINCRISTINE [Concomitant]
     Active Substance: VINCRISTINE
     Indication: Acute lymphocytic leukaemia
     Dates: start: 20250415, end: 20250426
  5. CYCLOPHOSPHAMIDE [Concomitant]
     Active Substance: CYCLOPHOSPHAMIDE
     Indication: Acute lymphocytic leukaemia
     Dosage: DAILY DOSE: 240 MG EVERY 1 DAY
     Dates: start: 20250423, end: 20250425
  6. CYTARABINE [Concomitant]
     Active Substance: CYTARABINE
     Indication: Acute lymphocytic leukaemia
     Dosage: DAILY DOSE: 2440 MG EVERY 1 DAY
     Dates: start: 20250425, end: 20250426
  7. LEVOCARNITINE [Concomitant]
     Active Substance: LEVOCARNITINE
     Indication: Acute lymphocytic leukaemia
     Dosage: DAILY DOSE: 2 G EVERY 1 DAY
     Dates: start: 20250414, end: 20250427
  8. ENALAPRIL [Concomitant]
     Active Substance: ENALAPRIL
     Indication: Acute lymphocytic leukaemia
     Dosage: 7.5 MG 2X TGL. DAILY DOSE: 15 MG EVERY 1 DAY
     Dates: start: 20250414, end: 20250427
  9. AMPHOTERICIN B [Concomitant]
     Active Substance: AMPHOTERICIN B
     Indication: Acute lymphocytic leukaemia
     Dosage: DAILY DOSE: 30 MG EVERY 1 DAY
     Dates: start: 20250414, end: 20250427
  10. POTASSIUM CHLORIDE [Concomitant]
     Active Substance: POTASSIUM CHLORIDE
     Indication: Hypokalaemia
     Dates: start: 20250416, end: 20250418
  11. POTASSIUM [Concomitant]
     Active Substance: POTASSIUM
     Indication: Hypokalaemia
     Dates: start: 20250418, end: 20250422
  12. PHYTONADIONE [Concomitant]
     Active Substance: PHYTONADIONE
     Dosage: DAILY DOSE: 10 MG EVERY 1 DAY
     Dates: start: 20250421, end: 20250423
  13. SULFAMETHOXAZOLE\TRIMETHOPRIM [Concomitant]
     Active Substance: SULFAMETHOXAZOLE\TRIMETHOPRIM
     Dosage: 80 MG 2 X DAILY. DAILY DOSE: 160 MG EVERY 1 DAY
     Dates: start: 20250419, end: 20250420
  14. METHOTREXATE [Suspect]
     Active Substance: METHOTREXATE
     Indication: Acute lymphocytic leukaemia
     Dates: start: 20250422, end: 20250422
  15. POTASSIUM [Concomitant]
     Active Substance: POTASSIUM
     Indication: Hypokalaemia
     Dates: start: 20250416, end: 20250418

REACTIONS (5)
  - Hypersensitivity [Recovered/Resolved]
  - Nausea [Recovered/Resolved]
  - Vomiting [Recovered/Resolved]
  - Hypokalaemia [Recovered/Resolved]
  - Rash [Recovered/Resolved]

NARRATIVE: CASE EVENT DATE: 20250401
